FAERS Safety Report 19881964 (Version 1)
Quarter: 2021Q3

REPORT INFORMATION
  Report Type: Report from Study
  Country: BR (occurrence: BR)
  Receive Date: 20210925
  Receipt Date: 20210925
  Transmission Date: 20211014
  Serious: Yes (Other)
  Sender: FDA-Public Use
  Company Number: NVSC2020BR313353

PATIENT
  Age: 50 Year
  Sex: Female

DRUGS (2)
  1. COSENTYX [Suspect]
     Active Substance: SECUKINUMAB
     Indication: RHEUMATOID ARTHRITIS
     Dosage: 300 MG
     Route: 065
     Dates: start: 202108
  2. COSENTYX [Suspect]
     Active Substance: SECUKINUMAB
     Indication: ANKYLOSING SPONDYLITIS
     Dosage: UNK(1 INJECTION)
     Route: 065
     Dates: start: 20200909

REACTIONS (13)
  - Gait disturbance [Recovering/Resolving]
  - Condition aggravated [Unknown]
  - Pain in extremity [Not Recovered/Not Resolved]
  - Ankylosing spondylitis [Unknown]
  - Burning sensation [Not Recovered/Not Resolved]
  - Peripheral swelling [Recovered/Resolved]
  - Limb discomfort [Not Recovered/Not Resolved]
  - Pruritus [Not Recovered/Not Resolved]
  - Dysstasia [Recovering/Resolving]
  - Dry skin [Unknown]
  - Skin exfoliation [Recovering/Resolving]
  - Product use in unapproved indication [Unknown]
  - Skin atrophy [Unknown]

NARRATIVE: CASE EVENT DATE: 20201113
